FAERS Safety Report 17106153 (Version 1)
Quarter: 2019Q4

REPORT INFORMATION
  Report Type: Spontaneous
  Country: TR (occurrence: TR)
  Receive Date: 20191203
  Receipt Date: 20191203
  Transmission Date: 20200122
  Serious: Yes (Hospitalization, Other)
  Sender: FDA-Public Use
  Company Number: TR-GLAXOSMITHKLINE-TR2019GSK212266

PATIENT
  Sex: Male

DRUGS (11)
  1. ADENOSINE. [Suspect]
     Active Substance: ADENOSINE
     Indication: NODAL ARRHYTHMIA
     Dosage: 400 MCG/KG
  2. DIGOXIN. [Suspect]
     Active Substance: DIGOXIN
     Indication: SUPRAVENTRICULAR TACHYCARDIA
  3. ADENOSINE. [Suspect]
     Active Substance: ADENOSINE
     Indication: SUPRAVENTRICULAR TACHYCARDIA
  4. AMIODARONE [Suspect]
     Active Substance: AMIODARONE
     Indication: SUPRAVENTRICULAR TACHYCARDIA
     Dosage: UNK
  5. LASIX [Suspect]
     Active Substance: FUROSEMIDE
     Indication: NODAL ARRHYTHMIA
     Dosage: UNK
  6. LASIX [Suspect]
     Active Substance: FUROSEMIDE
     Indication: SUPRAVENTRICULAR TACHYCARDIA
  7. PROPAFENONE. [Suspect]
     Active Substance: PROPAFENONE
     Indication: CARDIOMYOPATHY
     Dosage: UNK
  8. MILRINONE [Suspect]
     Active Substance: MILRINONE
     Indication: NODAL ARRHYTHMIA
     Dosage: UNK
  9. AMIODARONE [Suspect]
     Active Substance: AMIODARONE
     Indication: NODAL ARRHYTHMIA
  10. MILRINONE [Suspect]
     Active Substance: MILRINONE
     Indication: SUPRAVENTRICULAR TACHYCARDIA
  11. DIGOXIN. [Suspect]
     Active Substance: DIGOXIN
     Indication: NODAL ARRHYTHMIA
     Dosage: UNK
     Route: 064

REACTIONS (7)
  - Drug resistance [Unknown]
  - Foetal exposure during pregnancy [Unknown]
  - Drug ineffective [Unknown]
  - Cardiomyopathy [Unknown]
  - Ejection fraction decreased [Unknown]
  - Tachycardia [Unknown]
  - Premature baby [Unknown]
